FAERS Safety Report 24406903 (Version 1)
Quarter: 2024Q4

REPORT INFORMATION
  Report Type: Spontaneous
  Country: FR (occurrence: FR)
  Receive Date: 20241007
  Receipt Date: 20241007
  Transmission Date: 20250114
  Serious: Yes (Hospitalization, Other)
  Sender: SANOFI AVENTIS
  Company Number: None

PATIENT
  Age: 71 Year
  Sex: Male
  Weight: 118 kg

DRUGS (7)
  1. LOVENOX [Suspect]
     Active Substance: ENOXAPARIN SODIUM
     Indication: Atrial fibrillation
     Dosage: 16000 IU, QD (8000 X 2 / DAY)
     Route: 058
     Dates: start: 20240202, end: 20240213
  2. ATORVASTATIN [Concomitant]
     Active Substance: ATORVASTATIN
     Dosage: UNK
  3. LERCANIDIPINE HYDROCHLORIDE [Concomitant]
     Active Substance: LERCANIDIPINE HYDROCHLORIDE
     Dosage: UNK
  4. HYDROCHLOROTHIAZIDE\IRBESARTAN [Concomitant]
     Active Substance: HYDROCHLOROTHIAZIDE\IRBESARTAN
     Dosage: UNK
  5. FEBUXOSTAT [Concomitant]
     Active Substance: FEBUXOSTAT
     Dosage: UNK
  6. URAPIDIL [Concomitant]
     Active Substance: URAPIDIL
     Dosage: UNK
  7. POTASSIUM CHLORIDE [Concomitant]
     Active Substance: POTASSIUM CHLORIDE
     Dosage: UNK

REACTIONS (3)
  - Heparin-induced thrombocytopenia [Recovered/Resolved]
  - Anti-platelet factor 4 antibody positive [Recovered/Resolved]
  - Heparin-induced thrombocytopenia test [Recovered/Resolved]

NARRATIVE: CASE EVENT DATE: 20240210
